FAERS Safety Report 5984754-9 (Version None)
Quarter: 2008Q4

REPORT INFORMATION
  Report Type: 
  Country: None (occurrence: None)
  Receive Date: 20081208
  Receipt Date: 20081202
  Transmission Date: 20090506
  Serious: Yes (Other)
  Sender: FDA-Public Use
  Company Number: DE-B.I. PHARMACEUTICALS,INC./RIDGEFIELD-2008-DE-07399GD

PATIENT

DRUGS (1)
  1. ASPIRIN AND DIPYRIDAMOLE [Suspect]
     Indication: CEREBROVASCULAR STENOSIS
     Dosage: ASPIRIN 50 MG/DIPYRIDAMOL 400 MG

REACTIONS (1)
  - DRUG INEFFECTIVE [None]
